FAERS Safety Report 5893450-8 (Version None)
Quarter: 2008Q3

REPORT INFORMATION
  Report Type: 
  Country: None (occurrence: None)
  Receive Date: 20080919
  Receipt Date: 20080906
  Transmission Date: 20090109
  Serious: Yes (Other)
  Sender: FDA-Public Use
  Company Number: 8037099

PATIENT
  Age: 20 Year
  Sex: Female

DRUGS (2)
  1. KEPPRA [Suspect]
     Dosage: 2500 MG ONCE PO
     Route: 048
     Dates: start: 20080906, end: 20080906
  2. LAMOTRIGINE [Suspect]
     Dosage: 200 MG ONCE PO
     Route: 048
     Dates: start: 20080906, end: 20080906

REACTIONS (3)
  - INCORRECT DOSE ADMINISTERED [None]
  - SUICIDE ATTEMPT [None]
  - VOMITING [None]
